FAERS Safety Report 14728374 (Version 3)
Quarter: 2018Q2

REPORT INFORMATION
  Report Type: Spontaneous
  Country: JP (occurrence: JP)
  Receive Date: 20180406
  Receipt Date: 20180510
  Transmission Date: 20180711
  Serious: Yes (Other)
  Sender: FDA-Public Use
  Company Number: JP-009507513-1803JPN003383J

PATIENT
  Age: 44 Year
  Sex: Male

DRUGS (4)
  1. KEYTRUDA [Suspect]
     Active Substance: PEMBROLIZUMAB
     Indication: RENAL CELL CARCINOMA
     Dosage: 200 MG, Q3W
     Route: 041
     Dates: start: 20170713, end: 20170824
  2. AXITINIB [Concomitant]
     Active Substance: AXITINIB
     Indication: RENAL CELL CARCINOMA
     Dosage: 10 MG/DAY
     Route: 048
     Dates: start: 20170713, end: 20170914
  3. AXITINIB [Concomitant]
     Active Substance: AXITINIB
     Dosage: 10 MG, UNK
     Route: 048
     Dates: start: 20171207
  4. AXITINIB [Concomitant]
     Active Substance: AXITINIB
     Dosage: 6 MG, UNK
     Route: 048
     Dates: start: 20171116

REACTIONS (8)
  - Off label use [Unknown]
  - Vogt-Koyanagi-Harada syndrome [Unknown]
  - Hypopituitarism [Unknown]
  - Iridocyclitis [Recovered/Resolved]
  - Corneal disorder [Unknown]
  - Lacrimal disorder [Unknown]
  - Hepatic function abnormal [Unknown]
  - Adrenocorticotropic hormone deficiency [Unknown]

NARRATIVE: CASE EVENT DATE: 20170802
